FAERS Safety Report 13653456 (Version 1)
Quarter: 2017Q2

REPORT INFORMATION
  Report Type: Spontaneous
  Country: US (occurrence: US)
  Receive Date: 20170614
  Receipt Date: 20170614
  Transmission Date: 20170830
  Serious: No
  Sender: FDA-Public Use
  Company Number: US-ROCHE-1488173

PATIENT
  Age: 31 Year
  Sex: Female

DRUGS (1)
  1. XELODA [Suspect]
     Active Substance: CAPECITABINE
     Indication: NEOPLASM MALIGNANT
     Dosage: 3 TABS IN THE MORNING AND 4 TABS IN THE EVENING; 14 DAYS OUT OF 21DAYS CYCLE.
     Route: 048
     Dates: start: 20141016

REACTIONS (6)
  - Anxiety [Unknown]
  - Chest pain [Unknown]
  - Feeling hot [Unknown]
  - Erythema [Unknown]
  - Drug dose omission [Unknown]
  - Dry skin [Unknown]
